FAERS Safety Report 26011736 (Version 3)
Quarter: 2025Q4

REPORT INFORMATION
  Report Type: Spontaneous
  Country: US (occurrence: US)
  Receive Date: 20251107
  Receipt Date: 20251120
  Transmission Date: 20260118
  Serious: No
  Sender: CHATTEM
  Company Number: US-OPELLA-2025OHG031907

PATIENT
  Age: 53 Year
  Sex: Female

DRUGS (4)
  1. ALLEGRA ALLERGY [Suspect]
     Active Substance: FEXOFENADINE HYDROCHLORIDE
     Indication: Pruritus
  2. ZYRTEC [Suspect]
     Active Substance: CETIRIZINE HYDROCHLORIDE
     Indication: Pruritus
  3. DUPIXENT [Concomitant]
     Active Substance: DUPILUMAB
     Indication: Pruritus
     Dates: start: 20251014
  4. PREDNISONE [Concomitant]
     Active Substance: PREDNISONE
     Indication: Product used for unknown indication

REACTIONS (3)
  - Rash [Unknown]
  - Therapeutic product effect incomplete [Unknown]
  - Inappropriate schedule of product administration [Unknown]
